FAERS Safety Report 4866258-X (Version None)
Quarter: 2005Q4

REPORT INFORMATION
  Report Type: 
  Country: None (occurrence: None)
  Receive Date: 20051227
  Receipt Date: 20051004
  Transmission Date: 20060501
  Serious: Yes (Life-Threatening, Hospitalization, Other)
  Sender: FDA-Public Use
  Company Number: PHRM2005FR02637

PATIENT
  Age: 11 Year
  Sex: Male
  Weight: 50 kg

DRUGS (22)
  1. GLEEVEC [Suspect]
     Indication: ACUTE LYMPHOCYTIC LEUKAEMIA
     Dosage: 400 MG DAILY
     Route: 048
     Dates: start: 20050928, end: 20051003
  2. GLEEVEC [Suspect]
     Dosage: 100 MG DAILY
     Route: 048
     Dates: start: 20051007, end: 20051009
  3. GLEEVEC [Suspect]
     Dosage: 200 MG DAILY
     Route: 048
     Dates: start: 20051010, end: 20051014
  4. GLEEVEC [Suspect]
     Route: 048
     Dates: start: 20051015
  5. AMIKLIN [Suspect]
     Dosage: 750 MG, QD
     Dates: start: 20050928, end: 20051019
  6. BACTRIM [Suspect]
     Dosage: 800 MG, QW3
  7. FORTUM /NET/ [Suspect]
     Dosage: 2.5 G, TID
     Dates: start: 20050928, end: 20051019
  8. VINCRISTINE [Concomitant]
  9. DAUNORUBICINE [Concomitant]
     Route: 042
  10. ENDOXAN [Concomitant]
  11. PREDNISOLONE [Concomitant]
  12. TARGOCID [Suspect]
     Dosage: 400 MG, QD
     Dates: start: 20050928, end: 20051019
  13. FUNGIZONE [Concomitant]
  14. COLISTIN SULFATE [Concomitant]
  15. LANTUS [Concomitant]
  16. DUPHALAC                                /NET/ [Concomitant]
  17. MOPRAL [Concomitant]
  18. GAVISCON                                /GFR/ [Concomitant]
  19. ALDACTONE [Concomitant]
  20. MORPHINE [Concomitant]
  21. KIDROLASE [Concomitant]
  22. MESNA [Concomitant]
     Route: 042

REACTIONS (25)
  - ACUTE PULMONARY OEDEMA [None]
  - ANAEMIA [None]
  - BLOOD ALKALINE PHOSPHATASE DECREASED [None]
  - BLOOD CALCIUM DECREASED [None]
  - BLOOD POTASSIUM DECREASED [None]
  - BLOOD SODIUM DECREASED [None]
  - C-REACTIVE PROTEIN INCREASED [None]
  - CARDIOMEGALY [None]
  - DIFFUSE ALVEOLAR DAMAGE [None]
  - FOAMING AT MOUTH [None]
  - HAEMOGLOBIN DECREASED [None]
  - HEPATOMEGALY [None]
  - INTERSTITIAL LUNG DISEASE [None]
  - MYALGIA [None]
  - PAIN [None]
  - PARAPLEGIA [None]
  - PLATELET COUNT DECREASED [None]
  - PLEURAL EFFUSION [None]
  - PROTEIN TOTAL DECREASED [None]
  - RALES [None]
  - RED BLOOD CELL COUNT DECREASED [None]
  - RESPIRATORY DISTRESS [None]
  - SCIATICA [None]
  - THROMBOCYTOPENIA [None]
  - WHITE BLOOD CELL COUNT DECREASED [None]
